FAERS Safety Report 5859522-9 (Version None)
Quarter: 2008Q3

REPORT INFORMATION
  Report Type: 
  Country: None (occurrence: None)
  Receive Date: 20080827
  Receipt Date: 20080821
  Transmission Date: 20090109
  Serious: Yes (Hospitalization)
  Sender: FDA-Public Use
  Company Number: A0733676A

PATIENT
  Age: 55 Year
  Sex: Female
  Weight: 88.2 kg

DRUGS (9)
  1. AVANDARYL [Suspect]
     Dosage: 4MG PER DAY
     Route: 065
     Dates: start: 20020910, end: 20021021
  2. AVANDIA [Suspect]
     Dosage: 8MG PER DAY
     Route: 048
     Dates: start: 20021021, end: 20070914
  3. RESTORIL [Concomitant]
  4. COMBIVENT [Concomitant]
  5. ATUSS MS [Concomitant]
  6. GLUCOPHAGE [Concomitant]
  7. LORCET-HD [Concomitant]
  8. PAXIL CR [Concomitant]
  9. LORAZEPAM [Concomitant]

REACTIONS (8)
  - ARTERIOSCLEROSIS [None]
  - ATRIAL FIBRILLATION [None]
  - CARDIAC FAILURE CONGESTIVE [None]
  - CARDIOMYOPATHY [None]
  - CORONARY ARTERY DISEASE [None]
  - MYOCARDIAL INFARCTION [None]
  - PAIN [None]
  - VENTRICULAR TACHYCARDIA [None]
